FAERS Safety Report 8454374-5 (Version None)
Quarter: 2012Q2

REPORT INFORMATION
  Report Type: 
  Country: None (occurrence: None)
  Receive Date: 20120621
  Receipt Date: 20120615
  Transmission Date: 20120825
  Serious: No
  Sender: FDA-Public Use
  Company Number: US-B.I. PHARMACEUTICALS,INC./RIDGEFIELD-2012-BP-13820BP

PATIENT
  Sex: Female

DRUGS (5)
  1. NEXIUM [Concomitant]
     Indication: DYSPEPSIA
     Route: 048
  2. PREVACID [Concomitant]
     Indication: DYSPEPSIA
     Route: 048
  3. PRADAXA [Suspect]
     Indication: ATRIAL FIBRILLATION
     Dosage: 300 MG
     Route: 048
     Dates: start: 20120601
  4. TOPROL-XL [Concomitant]
     Indication: HYPERTENSION
     Route: 048
  5. AMOLODIPINE [Concomitant]
     Indication: HYPERTENSION
     Dosage: 5 MG
     Route: 048

REACTIONS (2)
  - OESOPHAGEAL PAIN [None]
  - DYSPEPSIA [None]
